FAERS Safety Report 5086909-7 (Version None)
Quarter: 2006Q3

REPORT INFORMATION
  Report Type: 
  Country: None (occurrence: None)
  Receive Date: 20060821
  Receipt Date: 20060804
  Transmission Date: 20061208
  Serious: Yes (Hospitalization, Other)
  Sender: FDA-Public Use
  Company Number: 2006AL002143

PATIENT
  Age: 50 Year
  Sex: Male

DRUGS (2)
  1. METFORMIN  HYDROCHLORIDE [Suspect]
     Indication: DIABETES MELLITUS NON-INSULIN-DEPENDENT
     Dosage: 500 MG;TID;PO
     Route: 048
  2. ENALAPRIL [Concomitant]

REACTIONS (2)
  - HEPATITIS TOXIC [None]
  - PHARMACEUTICAL PRODUCT COMPLAINT [None]
